FAERS Safety Report 10026299 (Version 1)
Quarter: 2014Q1

REPORT INFORMATION
  Report Type: Report from Study
  Country: GB (occurrence: GB)
  Receive Date: 20140320
  Receipt Date: 20140320
  Transmission Date: 20141002
  Serious: Yes (Other)
  Sender: FDA-Public Use
  Company Number: GB-BRISTOL-MYERS SQUIBB COMPANY-20538823

PATIENT
  Sex: Male

DRUGS (1)
  1. ABILIFY [Suspect]
     Indication: SCHIZOPHRENIA

REACTIONS (9)
  - Delusion [Unknown]
  - Hallucination [Unknown]
  - Abnormal behaviour [Unknown]
  - Memory impairment [Unknown]
  - Bradyphrenia [Unknown]
  - Disturbance in attention [Unknown]
  - Weight increased [Unknown]
  - Soliloquy [Unknown]
  - Apathy [Unknown]
